FAERS Safety Report 10644989 (Version 1)
Quarter: 2014Q4

REPORT INFORMATION
  Report Type: Spontaneous
  Country: US (occurrence: US)
  Receive Date: 20141211
  Receipt Date: 20141211
  Transmission Date: 20150529
  Serious: No
  Sender: FDA-Public Use
  Company Number: US-TEVA-507659USA

PATIENT
  Sex: Female

DRUGS (1)
  1. IRBESARTAN. [Suspect]
     Active Substance: IRBESARTAN
     Dosage: 300 MILLIGRAM DAILY;
     Route: 065

REACTIONS (2)
  - Blood sodium decreased [Unknown]
  - Enuresis [Unknown]
